FAERS Safety Report 21299482 (Version 2)
Quarter: 2022Q4

REPORT INFORMATION
  Report Type: Spontaneous
  Country: ES (occurrence: ES)
  Receive Date: 20220906
  Receipt Date: 20221014
  Transmission Date: 20230113
  Serious: Yes (Other)
  Sender: FDA-Public Use
  Company Number: ES-GLAXOSMITHKLINE-ES2022GSK126642

PATIENT

DRUGS (7)
  1. LITHIUM [Suspect]
     Active Substance: LITHIUM
     Indication: Major depression
     Dosage: 400 MG, BID
  2. LITHIUM [Suspect]
     Active Substance: LITHIUM
     Dosage: 200 MG, BID (HALF)
  3. BUPROPION [Suspect]
     Active Substance: BUPROPION
     Indication: Major depression
     Dosage: 300 MG, 1D
  4. QUETIAPINE [Suspect]
     Active Substance: QUETIAPINE
     Indication: Major depression
     Dosage: 50 MG, 1D
  5. METHYLPHENIDATE [Suspect]
     Active Substance: METHYLPHENIDATE
     Indication: Major depression
     Dosage: 20 MG, 1D
  6. PROPOFOL [Concomitant]
     Active Substance: PROPOFOL
     Indication: Product used for unknown indication
     Dosage: UNK
  7. SUCCINYLCHOLINE [Concomitant]
     Active Substance: SUCCINYLCHOLINE
     Indication: Product used for unknown indication
     Dosage: UNK

REACTIONS (7)
  - Myoclonic epilepsy [Recovered/Resolved]
  - Loss of consciousness [Recovered/Resolved]
  - Partial seizures [Recovered/Resolved]
  - CSWS syndrome [Recovered/Resolved]
  - Condition aggravated [Unknown]
  - Drug resistance [Unknown]
  - Drug ineffective [Unknown]
